FAERS Safety Report 6007663-8 (Version None)
Quarter: 2008Q4

REPORT INFORMATION
  Report Type: 
  Country: None (occurrence: None)
  Receive Date: 20081217
  Receipt Date: 20080401
  Transmission Date: 20090506
  Serious: No
  Sender: FDA-Public Use
  Company Number: US-ASTRAZENECA-2008UW06506

PATIENT
  Age: 65 Year
  Sex: Male
  Weight: 65.8 kg

DRUGS (11)
  1. CRESTOR [Suspect]
     Indication: BLOOD CHOLESTEROL INCREASED
     Route: 048
     Dates: start: 20050101
  2. CRESTOR [Suspect]
     Route: 048
  3. LEVOTHYROXINE SODIUM [Concomitant]
  4. ASCORBIC ACID [Concomitant]
  5. MULTI-VITAMINS [Concomitant]
  6. VITAMIN E [Concomitant]
  7. GLUCOSAMINE CHONDROITAN + MSM [Concomitant]
  8. CLARITIN [Concomitant]
  9. FOLIC ACID [Concomitant]
  10. VITAMIN B-12 [Concomitant]
  11. HYDROCHLOROTHIAZIDE [Concomitant]

REACTIONS (4)
  - ARTHRALGIA [None]
  - BLOOD CHOLESTEROL INCREASED [None]
  - BLOOD TRIGLYCERIDES INCREASED [None]
  - MYALGIA [None]
